FAERS Safety Report 8007150 (Version 2)
Quarter: 2014Q2

REPORT INFORMATION
  Report Type: Spontaneous
  Country: US (occurrence: US)
  Receive Date: 20110623
  Receipt Date: 20140611
  Transmission Date: 20141212
  Serious: Yes (Other)
  Sender: FDA-Public Use
  Company Number: US-ASTRAZENECA-2010SE43439

PATIENT
  Sex: Female

DRUGS (2)
  1. SEROQUEL [Suspect]
     Route: 048
     Dates: start: 201005
  2. SEROQUEL [Suspect]
     Route: 048

REACTIONS (15)
  - Back pain [Unknown]
  - Intervertebral disc degeneration [Unknown]
  - Arthritis [Unknown]
  - Joint swelling [Unknown]
  - Gait disturbance [Unknown]
  - Cartilage injury [Unknown]
  - Impaired work ability [Unknown]
  - Muscle spasms [Unknown]
  - Muscle spasms [Unknown]
  - Muscle spasms [Unknown]
  - Drug dose omission [Unknown]
  - Hernia [Unknown]
  - Meniscus injury [Unknown]
  - Bronchitis [Unknown]
  - Arthralgia [Unknown]
